FAERS Safety Report 6303343-X (Version None)
Quarter: 2009Q3

REPORT INFORMATION
  Report Type: 
  Country: None (occurrence: None)
  Receive Date: 20090810
  Receipt Date: 20090714
  Transmission Date: 20100115
  Serious: No
  Sender: FDA-Public Use
  Company Number: A0795573A

PATIENT
  Age: 24 Year
  Sex: Female

DRUGS (1)
  1. TREXIMET [Suspect]
     Indication: MIGRAINE
     Dosage: 1TAB SINGLE DOSE
     Route: 048
     Dates: start: 20090601, end: 20090601

REACTIONS (3)
  - FEELING JITTERY [None]
  - HYPERHIDROSIS [None]
  - TREMOR [None]
